FAERS Safety Report 8115150-6 (Version None)
Quarter: 2012Q1

REPORT INFORMATION
  Report Type: 
  Country: None (occurrence: None)
  Receive Date: 20120123
  Receipt Date: 20120114
  Transmission Date: 20120608
  Serious: Yes (Other)
  Sender: FDA-Public Use
  Company Number: 2011027576

PATIENT
  Age: 61 Year
  Sex: Female
  Weight: 91.173 kg

DRUGS (35)
  1. ZEMAIRA [Suspect]
  2. ZEMAIRA [Suspect]
  3. NOVOLOG [Concomitant]
  4. PROTONIX [Concomitant]
  5. SODIUM CHLORIDE 0.9% [Concomitant]
  6. IBUPROFEN [Concomitant]
  7. XANAX [Concomitant]
  8. LEVOTHYROXINE SODIUM [Concomitant]
  9. ZEMAIRA [Suspect]
     Indication: ALPHA-1 ANTI-TRYPSIN DEFICIENCY
     Dosage: (60 MG/KG 1X/WEEK, 1012 MG VIALS; 60 MG/KG INFUSED OVER 30 MINUTES INTRAVENOUS (NOT OTHERWISE SPECIF
     Route: 042
     Dates: start: 20110126
  10. ZEMAIRA [Suspect]
     Indication: CHRONIC OBSTRUCTIVE PULMONARY DISEASE
     Dosage: (60 MG/KG 1X/WEEK, 1012 MG VIALS; 60 MG/KG INFUSED OVER 30 MINUTES INTRAVENOUS (NOT OTHERWISE SPECIF
     Route: 042
     Dates: start: 20110126
  11. ZEMAIRA [Suspect]
     Indication: ALPHA-1 ANTI-TRYPSIN DEFICIENCY
     Dosage: (60 MG/KG 1X/WEEK, 1012 MG VIALS; 60 MG/KG INFUSED OVER 30 MINUTES INTRAVENOUS (NOT OTHERWISE SPECIF
     Route: 042
     Dates: start: 20110331
  12. ZEMAIRA [Suspect]
     Indication: CHRONIC OBSTRUCTIVE PULMONARY DISEASE
     Dosage: (60 MG/KG 1X/WEEK, 1012 MG VIALS; 60 MG/KG INFUSED OVER 30 MINUTES INTRAVENOUS (NOT OTHERWISE SPECIF
     Route: 042
     Dates: start: 20110331
  13. ZEMAIRA [Suspect]
     Indication: ALPHA-1 ANTI-TRYPSIN DEFICIENCY
     Dosage: (60 MG/KG 1X/WEEK, 1012 MG VIALS; 60 MG/KG INFUSED OVER 30 MINUTES INTRAVENOUS (NOT OTHERWISE SPECIF
     Route: 042
     Dates: start: 20110220
  14. ZEMAIRA [Suspect]
     Indication: CHRONIC OBSTRUCTIVE PULMONARY DISEASE
     Dosage: (60 MG/KG 1X/WEEK, 1012 MG VIALS; 60 MG/KG INFUSED OVER 30 MINUTES INTRAVENOUS (NOT OTHERWISE SPECIF
     Route: 042
     Dates: start: 20110220
  15. ZEMAIRA [Suspect]
     Indication: ALPHA-1 ANTI-TRYPSIN DEFICIENCY
     Dosage: (60 MG/KG 1X/WEEK, 1012 MG VIALS; 60 MG/KG INFUSED OVER 30 MINUTES INTRAVENOUS (NOT OTHERWISE SPECIF
     Route: 042
     Dates: start: 20110505
  16. ZEMAIRA [Suspect]
     Indication: CHRONIC OBSTRUCTIVE PULMONARY DISEASE
     Dosage: (60 MG/KG 1X/WEEK, 1012 MG VIALS; 60 MG/KG INFUSED OVER 30 MINUTES INTRAVENOUS (NOT OTHERWISE SPECIF
     Route: 042
     Dates: start: 20110505
  17. ZEMAIRA [Suspect]
     Indication: ALPHA-1 ANTI-TRYPSIN DEFICIENCY
     Dosage: (60 MG/KG 1X/WEEK, 1012 MG VIALS; 60 MG/KG INFUSED OVER 30 MINUTES INTRAVENOUS (NOT OTHERWISE SPECIF
     Route: 042
     Dates: start: 20110128
  18. ZEMAIRA [Suspect]
     Indication: CHRONIC OBSTRUCTIVE PULMONARY DISEASE
     Dosage: (60 MG/KG 1X/WEEK, 1012 MG VIALS; 60 MG/KG INFUSED OVER 30 MINUTES INTRAVENOUS (NOT OTHERWISE SPECIF
     Route: 042
     Dates: start: 20110128
  19. ZEMAIRA [Suspect]
     Indication: ALPHA-1 ANTI-TRYPSIN DEFICIENCY
     Dosage: (60 MG/KG 1X/WEEK, 1012 MG VIALS; 60 MG/KG INFUSED OVER 30 MINUTES INTRAVENOUS (NOT OTHERWISE SPECIF
     Route: 042
     Dates: start: 20110126
  20. ZEMAIRA [Suspect]
     Indication: CHRONIC OBSTRUCTIVE PULMONARY DISEASE
     Dosage: (60 MG/KG 1X/WEEK, 1012 MG VIALS; 60 MG/KG INFUSED OVER 30 MINUTES INTRAVENOUS (NOT OTHERWISE SPECIF
     Route: 042
     Dates: start: 20110126
  21. ZEMAIRA [Suspect]
     Indication: ALPHA-1 ANTI-TRYPSIN DEFICIENCY
     Dosage: (60 MG/KG 1X/WEEK, 1012 MG VIALS; 60 MG/KG INFUSED OVER 30 MINUTES INTRAVENOUS (NOT OTHERWISE SPECIF
     Route: 042
     Dates: start: 20101101
  22. ZEMAIRA [Suspect]
     Indication: CHRONIC OBSTRUCTIVE PULMONARY DISEASE
     Dosage: (60 MG/KG 1X/WEEK, 1012 MG VIALS; 60 MG/KG INFUSED OVER 30 MINUTES INTRAVENOUS (NOT OTHERWISE SPECIF
     Route: 042
     Dates: start: 20101101
  23. VITAMIN B12 [Concomitant]
  24. ZEMAIRA [Suspect]
  25. NOVOLOG [Concomitant]
  26. CELEXA [Concomitant]
  27. LANTUS [Concomitant]
  28. ATENOLOL [Concomitant]
  29. ALBUTEROL [Concomitant]
  30. MULTIVITAMIN (ACCOMIN MULTIVITAMIN) [Concomitant]
  31. VITAMIN D [Concomitant]
  32. ZEMAIRA [Suspect]
  33. GABAPENTIN [Concomitant]
  34. ZEMAIRA [Suspect]
  35. CARDIZEM [Concomitant]

REACTIONS (15)
  - MUSCULOSKELETAL CHEST PAIN [None]
  - DIZZINESS [None]
  - CONTUSION [None]
  - HEADACHE [None]
  - INFUSION RELATED REACTION [None]
  - FATIGUE [None]
  - PAIN IN EXTREMITY [None]
  - ORAL DISCOMFORT [None]
  - FALL [None]
  - ORAL PRURITUS [None]
  - CONDITION AGGRAVATED [None]
  - ANGIOEDEMA [None]
  - LIMB INJURY [None]
  - PRURITUS GENERALISED [None]
  - NASAL CONGESTION [None]
